FAERS Safety Report 6929590-1 (Version None)
Quarter: 2010Q3

REPORT INFORMATION
  Report Type: 
  Country: None (occurrence: None)
  Receive Date: 20100818
  Receipt Date: 20100806
  Transmission Date: 20110219
  Serious: No
  Sender: FDA-Public Use
  Company Number: US-B.I. PHARMACEUTICALS,INC./RIDGEFIELD-2010-BP-04311BP

PATIENT
  Sex: Male

DRUGS (11)
  1. SPIRIVA [Suspect]
     Indication: DYSPNOEA
     Dosage: 18 MCG
     Route: 055
     Dates: start: 20100401, end: 20100401
  2. ANTIBIOTIC [Concomitant]
     Indication: BRONCHITIS
  3. LEVAQUIN [Concomitant]
     Dosage: 500MG
  4. AZITHROMYCIN [Concomitant]
     Dosage: 250MG
  5. HYDROCODONE BITARTRATE [Concomitant]
  6. ANGINE [Concomitant]
  7. CARDIZEM [Concomitant]
  8. INNOPRAN [Concomitant]
  9. TRICOR [Concomitant]
  10. NIASPAN [Concomitant]
  11. CRESTOR [Concomitant]

REACTIONS (3)
  - DECREASED APPETITE [None]
  - DYSGEUSIA [None]
  - PAROSMIA [None]
